FAERS Safety Report 14702759 (Version 2)
Quarter: 2018Q2

REPORT INFORMATION
  Report Type: Spontaneous
  Country: FI (occurrence: FI)
  Receive Date: 20180402
  Receipt Date: 20180411
  Transmission Date: 20180711
  Serious: Yes (Death, Other)
  Sender: FDA-Public Use
  Company Number: FI-BAXTER-2018BAX009575

PATIENT
  Age: 69 Year
  Sex: Female

DRUGS (1)
  1. NATRIUMKLORID BAXTER 9 MG/ML INFUUSIONESTE, LIUOS [Suspect]
     Active Substance: SODIUM CHLORIDE
     Indication: HAEMODIALYSIS
     Route: 010

REACTIONS (3)
  - Haemorrhage [Unknown]
  - Death [Fatal]
  - Device connection issue [Unknown]

NARRATIVE: CASE EVENT DATE: 20180318
